FAERS Safety Report 25041006 (Version 1)
Quarter: 2025Q1

REPORT INFORMATION
  Report Type: Spontaneous
  Country: US (occurrence: None)
  Receive Date: 20250304
  Receipt Date: 20250304
  Transmission Date: 20250409
  Serious: Yes (Death)
  Sender: FDA-CTU
  Company Number: None

PATIENT
  Sex: Female

DRUGS (1)
  1. TASIGNA [Suspect]
     Active Substance: NILOTINIB
     Indication: Breast cancer female
     Dosage: 400 MG TWICE A DAY ORAL
     Route: 048
     Dates: start: 20241030, end: 20250303

REACTIONS (1)
  - Death [None]
